FAERS Safety Report 15370686 (Version 1)
Quarter: 2018Q3

REPORT INFORMATION
  Report Type: Spontaneous
  Country: US (occurrence: US)
  Receive Date: 20180905
  Receipt Date: 20180905
  Transmission Date: 20181010
  Serious: Yes (Other)
  Sender: FDA-Public Use
  Company Number: None

PATIENT
  Age: 44 Year
  Sex: Female

DRUGS (1)
  1. CLONAZEPAM 0.5 MG TABLET [Suspect]
     Active Substance: CLONAZEPAM

REACTIONS (3)
  - Product substitution issue [None]
  - Impaired driving ability [None]
  - Somnolence [None]

NARRATIVE: CASE EVENT DATE: 20180620
